FAERS Safety Report 10452379 (Version 2)
Quarter: 2014Q3

REPORT INFORMATION
  Report Type: Spontaneous
  Country: IN (occurrence: IN)
  Receive Date: 20140915
  Receipt Date: 20140922
  Transmission Date: 20150326
  Serious: Yes (Disabling)
  Sender: FDA-Public Use
  Company Number: IN-ROCHE-1461840

PATIENT
  Age: 68 Year
  Sex: Female
  Weight: 62 kg

DRUGS (2)
  1. LUCENTIS [Suspect]
     Active Substance: RANIBIZUMAB
     Indication: CHOROIDAL NEOVASCULARISATION
     Route: 050
     Dates: start: 20140718
  2. LUCENTIS [Suspect]
     Active Substance: RANIBIZUMAB
     Indication: RETINAL PIGMENT EPITHELIOPATHY
     Route: 050
     Dates: start: 20140819, end: 20140829

REACTIONS (1)
  - Retinal pigment epithelial tear [Unknown]

NARRATIVE: CASE EVENT DATE: 20140829
